FAERS Safety Report 19545730 (Version 1)
Quarter: 2021Q3

REPORT INFORMATION
  Report Type: Spontaneous
  Country: US (occurrence: US)
  Receive Date: 20210713
  Receipt Date: 20210713
  Transmission Date: 20211014
  Serious: Yes (Other)
  Sender: FDA-Public Use
  Company Number: US-ENDO PHARMACEUTICALS INC-2021-006049

PATIENT
  Age: 62 Year
  Sex: Male

DRUGS (3)
  1. RANITIDINE. [Suspect]
     Active Substance: RANITIDINE
     Indication: ADVERSE DRUG REACTION
     Dosage: 300 MG, DAILY
     Route: 065
     Dates: start: 201003, end: 202008
  2. RANITIDINE HYDROCHLORIDE. [Suspect]
     Active Substance: RANITIDINE HYDROCHLORIDE
     Indication: ADVERSE DRUG REACTION
     Dosage: 300 MG, DAILY
     Route: 065
     Dates: start: 201003, end: 202008
  3. RANITIDINE. [Suspect]
     Active Substance: RANITIDINE
     Indication: ADVERSE DRUG REACTION
     Dosage: 300 MG, DAILY
     Route: 065
     Dates: start: 201003, end: 202008

REACTIONS (2)
  - Pancreatic carcinoma stage II [Recovering/Resolving]
  - Renal cancer [Recovering/Resolving]

NARRATIVE: CASE EVENT DATE: 20141101
